FAERS Safety Report 7480789-8 (Version None)
Quarter: 2011Q2

REPORT INFORMATION
  Report Type: 
  Country: None (occurrence: None)
  Receive Date: 20110506
  Receipt Date: 20110421
  Transmission Date: 20111010
  Serious: Yes (Other)
  Sender: FDA-Public Use
  Company Number: 2010CP000330

PATIENT
  Age: 5 Year
  Sex: Male

DRUGS (3)
  1. ARTEMETHER (ARTEMETHER) [Suspect]
     Dosage: 90 MG, 1 DAY; IM
     Route: 030
     Dates: start: 20101129, end: 20101201
  2. ACETAMINOPHEN [Suspect]
     Indication: INFLUENZA LIKE ILLNESS
     Dosage: 45 ML; Q6H; IV
     Route: 042
     Dates: start: 20101129, end: 20101129
  3. DEXAMETHASONE [Suspect]
     Dosage: 1 DOSAGE FORM;

REACTIONS (4)
  - TONIC CONVULSION [None]
  - CHILLS [None]
  - HALLUCINATION [None]
  - INFUSION RELATED REACTION [None]
